FAERS Safety Report 8521353-9 (Version None)
Quarter: 2012Q3

REPORT INFORMATION
  Report Type: 
  Country: None (occurrence: None)
  Receive Date: 20120712
  Receipt Date: 20120712
  Transmission Date: 20120928
  Serious: Yes (Other)
  Sender: FDA-Public Use
  Company Number: None

PATIENT
  Sex: Female

DRUGS (1)
  1. COPAXONE [Suspect]
     Indication: MULTIPLE SCLEROSIS
     Dosage: 20MG DAILY SQ
     Route: 058
     Dates: start: 20110414

REACTIONS (9)
  - NONSPECIFIC REACTION [None]
  - MUSCULAR WEAKNESS [None]
  - SYNCOPE [None]
  - CHEST DISCOMFORT [None]
  - GAIT DISTURBANCE [None]
  - FEELING HOT [None]
  - VOMITING [None]
  - ABDOMINAL PAIN UPPER [None]
  - DYSPNOEA [None]
